FAERS Safety Report 8218819-8 (Version None)
Quarter: 2012Q1

REPORT INFORMATION
  Report Type: 
  Country: None (occurrence: None)
  Receive Date: 20120319
  Receipt Date: 20120313
  Transmission Date: 20120608
  Serious: Yes (Other)
  Sender: FDA-Public Use
  Company Number: PHHY2012DE022113

PATIENT
  Sex: Female
  Weight: 0.76 kg

DRUGS (3)
  1. TOPAMAX [Suspect]
     Indication: EPILEPSY
     Dosage: 100 MG/DAY
  2. TRILEPTAL [Suspect]
     Indication: EPILEPSY
     Dosage: 2400 MG/DAY
  3. KEPPRA [Suspect]
     Indication: EPILEPSY
     Dosage: 2000 MG/DAY

REACTIONS (3)
  - PREMATURE BABY [None]
  - LOW BIRTH WEIGHT BABY [None]
  - FOETAL EXPOSURE DURING PREGNANCY [None]
